FAERS Safety Report 21060201 (Version 3)
Quarter: 2022Q4

REPORT INFORMATION
  Report Type: Spontaneous
  Country: US (occurrence: US)
  Receive Date: 20220708
  Receipt Date: 20221026
  Transmission Date: 20230113
  Serious: No
  Sender: FDA-Public Use
  Company Number: US-SA-SAC20220704000209

PATIENT
  Age: 27 Year
  Sex: Female
  Weight: 79.83 kg

DRUGS (7)
  1. DUPIXENT [Suspect]
     Active Substance: DUPILUMAB
     Indication: Dermatitis atopic
     Dosage: 300 MG, QOW
     Route: 058
     Dates: start: 20220514
  2. DULERA [Concomitant]
     Active Substance: FORMOTEROL FUMARATE DIHYDRATE\MOMETASONE FUROATE
     Dosage: UNK
  3. ALBUTEROL SULFATE [Concomitant]
     Active Substance: ALBUTEROL SULFATE
     Dosage: UNK
  4. IBUPROFEN [Concomitant]
     Active Substance: IBUPROFEN
     Dosage: UNK
  5. PETROLATUM [Concomitant]
     Active Substance: PETROLATUM
     Dosage: UNK
  6. MOMETASONE FUROATE [Concomitant]
     Active Substance: MOMETASONE FUROATE
     Dosage: UNK
  7. PROBIOTICS NOS [Concomitant]
     Active Substance: PROBIOTICS NOS
     Dosage: UNK

REACTIONS (8)
  - Solar lentigo [Unknown]
  - Skin swelling [Unknown]
  - Erythema [Unknown]
  - Pain of skin [Unknown]
  - Pruritus [Unknown]
  - Weight decreased [Unknown]
  - Decreased appetite [Unknown]
  - Stress [Unknown]

NARRATIVE: CASE EVENT DATE: 20220101
